FAERS Safety Report 8624547-7 (Version None)
Quarter: 2012Q3

REPORT INFORMATION
  Report Type: 
  Country: None (occurrence: None)
  Receive Date: 20120810
  Receipt Date: 20120725
  Transmission Date: 20120928
  Serious: Yes (Hospitalization, Other)
  Sender: FDA-Public Use
  Company Number: 2012MA009249

PATIENT
  Age: 26 Year
  Sex: Male

DRUGS (2)
  1. SULFASALAZINE [Suspect]
     Indication: ANKYLOSING SPONDYLITIS
     Dosage: 50 GR;PO
     Route: 048
  2. FEVERALL [Suspect]
     Dosage: 50 G; PO
     Route: 048

REACTIONS (8)
  - CONVULSION [None]
  - MUSCLE TWITCHING [None]
  - HYPOTHERMIA [None]
  - LACTIC ACIDOSIS [None]
  - METABOLIC ACIDOSIS [None]
  - RESPIRATORY DEPRESSION [None]
  - TOXICITY TO VARIOUS AGENTS [None]
  - COAGULOPATHY [None]
